FAERS Safety Report 15119395 (Version 1)
Quarter: 2018Q3

REPORT INFORMATION
  Report Type: Spontaneous
  Country: US (occurrence: US)
  Receive Date: 20180612
  Receipt Date: 20180612
  Transmission Date: 20181010
  Serious: Yes (Hospitalization)
  Sender: FDA-Public Use
  Company Number: None

PATIENT
  Age: 72 Year
  Sex: Male
  Weight: 92.6 kg

DRUGS (12)
  1. GLIPIZIDE. [Suspect]
     Active Substance: GLIPIZIDE
     Indication: DIABETES MELLITUS
     Route: 048
  2. ASA [Concomitant]
     Active Substance: ASPIRIN
  3. APIXABAN [Concomitant]
     Active Substance: APIXABAN
  4. NICODERM CQ [Concomitant]
     Active Substance: NICOTINE
  5. PRINIVIL [Concomitant]
     Active Substance: LISINOPRIL
  6. METFORMIN [Suspect]
     Active Substance: METFORMIN HYDROCHLORIDE
     Indication: DIABETES MELLITUS
     Route: 048
  7. OXY?IR [Concomitant]
     Active Substance: OXYCODONE HYDROCHLORIDE
  8. LIPITOR [Concomitant]
     Active Substance: ATORVASTATIN CALCIUM
  9. COREG [Concomitant]
     Active Substance: CARVEDILOL
  10. AMIODARONE [Concomitant]
     Active Substance: AMIODARONE
  11. VITAMIN C [Concomitant]
     Active Substance: ASCORBIC ACID
  12. TRICOR [Concomitant]
     Active Substance: FENOFIBRATE

REACTIONS (2)
  - Hypophagia [None]
  - Hypoglycaemia [None]

NARRATIVE: CASE EVENT DATE: 20180314
